FAERS Safety Report 12701959 (Version 2)
Quarter: 2019Q4

REPORT INFORMATION
  Report Type: Spontaneous
  Country: US (occurrence: US)
  Receive Date: 20160831
  Receipt Date: 20191016
  Transmission Date: 20200122
  Serious: No
  Sender: FDA-Public Use
  Company Number: US-JAZZ-2016-US-007283

PATIENT
  Sex: Male
  Weight: 141 kg

DRUGS (13)
  1. XYREM [Suspect]
     Active Substance: SODIUM OXYBATE
     Indication: NARCOLEPSY
     Dosage: 2.5 G, BID
     Route: 048
     Dates: start: 201601, end: 201602
  2. XYREM [Suspect]
     Active Substance: SODIUM OXYBATE
     Indication: CATAPLEXY
     Dosage: DOSE ADJUSTMENTS
     Route: 048
     Dates: start: 2016, end: 2016
  3. XYREM [Suspect]
     Active Substance: SODIUM OXYBATE
     Dosage: 4.5 G, BID
     Route: 048
     Dates: start: 201602, end: 2016
  4. LANTUS [Suspect]
     Active Substance: INSULIN GLARGINE
     Indication: PRODUCT USED FOR UNKNOWN INDICATION
     Dosage: 100 U/ML
  5. MELOXICAM. [Concomitant]
     Active Substance: MELOXICAM
  6. ABILIFY [Concomitant]
     Active Substance: ARIPIPRAZOLE
  7. XYREM [Suspect]
     Active Substance: SODIUM OXYBATE
     Dosage: 6 G, BID
     Route: 048
     Dates: start: 2016
  8. IBUPROFEN. [Concomitant]
     Active Substance: IBUPROFEN
  9. PRAVASTATIN SODIUM. [Concomitant]
     Active Substance: PRAVASTATIN SODIUM
  10. PIROXICAM. [Concomitant]
     Active Substance: PIROXICAM
  11. ACTOS [Concomitant]
     Active Substance: PIOGLITAZONE HYDROCHLORIDE
  12. METFORMIN HCL [Concomitant]
     Active Substance: METFORMIN HYDROCHLORIDE
  13. MODAFINIL. [Concomitant]
     Active Substance: MODAFINIL

REACTIONS (5)
  - Pre-existing condition improved [Unknown]
  - Weight increased [Recovering/Resolving]
  - Road traffic accident [Unknown]
  - Drug tolerance [Unknown]
  - Dizziness [Unknown]

NARRATIVE: CASE EVENT DATE: 2016
